FAERS Safety Report 6235558-3 (Version None)
Quarter: 2009Q2

REPORT INFORMATION
  Report Type: 
  Country: None (occurrence: None)
  Receive Date: 20090618
  Receipt Date: 20090205
  Transmission Date: 20091009
  Serious: No
  Sender: FDA-Public Use
  Company Number: US-ASTRAZENECA-2009UW03424

PATIENT
  Age: 57 Year
  Sex: Female
  Weight: 54.4 kg

DRUGS (1)
  1. RHINOCORT [Suspect]
     Indication: HYPERSENSITIVITY
     Route: 045
     Dates: start: 20020101

REACTIONS (5)
  - DYSPHONIA [None]
  - HEADACHE [None]
  - MALAISE [None]
  - NASAL CONGESTION [None]
  - PARANASAL SINUS HYPERSECRETION [None]
